FAERS Safety Report 4432344-1 (Version None)
Quarter: 2004Q3

REPORT INFORMATION
  Report Type: 
  Country: None (occurrence: None)
  Receive Date: 20040820
  Receipt Date: 20040809
  Transmission Date: 20050211
  Serious: Yes (Disabling)
  Sender: FDA-Public Use
  Company Number: 2004GB01919

PATIENT
  Age: 59 Year
  Sex: Male
  Weight: 78 kg

DRUGS (2)
  1. OMEPRAZOLE [Suspect]
     Indication: GASTROOESOPHAGEAL REFLUX DISEASE
     Dosage: 10 MG QAM PO
     Route: 048
     Dates: start: 19990101
  2. PENTASA [Suspect]
     Indication: CROHN'S DISEASE
     Dosage: 500 MG TID PO
     Route: 048
     Dates: start: 20040101

REACTIONS (2)
  - LESION OF ULNAR NERVE [None]
  - SENSORY LOSS [None]
